FAERS Safety Report 18650036 (Version 1)
Quarter: 2020Q4

REPORT INFORMATION
  Report Type: Report from Study
  Country: CR (occurrence: CR)
  Receive Date: 20201222
  Receipt Date: 20201222
  Transmission Date: 20210114
  Serious: Yes (Other)
  Sender: FDA-Public Use
  Company Number: NVSC2020CR335786

PATIENT
  Age: 75 Year
  Sex: Female

DRUGS (1)
  1. IRBESARTAN. [Suspect]
     Active Substance: IRBESARTAN
     Indication: HYPERTENSION
     Dosage: 2 DF, QD
     Route: 065

REACTIONS (3)
  - Cardiomegaly [Unknown]
  - Agitation [Unknown]
  - Chest pain [Unknown]
